FAERS Safety Report 8273727-1 (Version None)
Quarter: 2012Q2

REPORT INFORMATION
  Report Type: 
  Country: None (occurrence: None)
  Receive Date: 20120411
  Receipt Date: 20120403
  Transmission Date: 20120825
  Serious: Yes (Death)
  Sender: FDA-Public Use
  Company Number: FR-SANOFI-AVENTIS-2012SA016923

PATIENT
  Age: 42 Year
  Sex: Male

DRUGS (2)
  1. ZOLPIDEM TARTRATE [Suspect]
     Indication: INSOMNIA
     Dosage: STRENGTH: 10 MG
     Route: 048
  2. BACLOFEN [Suspect]
     Indication: ABSTAINS FROM ALCOHOL
     Route: 048

REACTIONS (2)
  - COMPLETED SUICIDE [None]
  - FALL [None]
